FAERS Safety Report 19472875 (Version 1)
Quarter: 2021Q2

REPORT INFORMATION
  Report Type: Report from Study
  Country: US (occurrence: US)
  Receive Date: 20210629
  Receipt Date: 20210629
  Transmission Date: 20210717
  Serious: Yes (Other)
  Sender: FDA-Public Use
  Company Number: US-VERTEX PHARMACEUTICALS-2021-009644

PATIENT
  Age: 5 Year
  Sex: Male

DRUGS (10)
  1. HYPERSAL [Concomitant]
     Active Substance: SODIUM CHLORIDE
  2. CYPROHEPTADINE. [Concomitant]
     Active Substance: CYPROHEPTADINE
  3. PULMOZYME [Concomitant]
     Active Substance: DORNASE ALFA
  4. ORKAMBI [Suspect]
     Active Substance: IVACAFTOR\LUMACAFTOR
     Indication: CYSTIC FIBROSIS
     Dosage: 1 DOSAGE FORM, BID
     Route: 048
     Dates: start: 202008, end: 20210603
  5. CULTURELLE [Concomitant]
     Active Substance: LACTOBACILLUS RHAMNOSUS
  6. XOPENEX HFA [Concomitant]
     Active Substance: LEVALBUTEROL TARTRATE
  7. ZENPEP [Concomitant]
     Active Substance: PANCRELIPASE AMYLASE\PANCRELIPASE LIPASE\PANCRELIPASE PROTEASE
  8. ADVAIR HFA [Concomitant]
     Active Substance: FLUTICASONE PROPIONATE\SALMETEROL XINAFOATE
  9. TOBRAMYCIN. [Concomitant]
     Active Substance: TOBRAMYCIN
  10. FAMOTIDINE. [Concomitant]
     Active Substance: FAMOTIDINE

REACTIONS (3)
  - Liver function test increased [Not Recovered/Not Resolved]
  - Pancreatic enzymes increased [Not Recovered/Not Resolved]
  - Gallbladder disorder [Not Recovered/Not Resolved]

NARRATIVE: CASE EVENT DATE: 20210603
